FAERS Safety Report 4590857-6 (Version None)
Quarter: 2005Q1

REPORT INFORMATION
  Report Type: 
  Country: None (occurrence: None)
  Receive Date: 20050222
  Receipt Date: 20050222
  Transmission Date: 20050727
  Serious: Yes (Other)
  Sender: FDA-Public Use
  Company Number: None

PATIENT
  Sex: Male
  Weight: 87.2 kg

DRUGS (2)
  1. DAUNORUBICIN [Suspect]
     Dosage: 60 MG /M2/ DAY BY IVP ON DAYS 1-3
     Route: 042
     Dates: start: 20041217
  2. CYTARABINE [Suspect]
     Dosage: 100 MG/M2 /DAY BY CIV ON DAYS 1-7
     Route: 042

REACTIONS (4)
  - CLOSTRIDIUM COLITIS [None]
  - INTESTINAL OBSTRUCTION [None]
  - MASS [None]
  - SOFT TISSUE DISORDER [None]
